FAERS Safety Report 12679110 (Version 1)
Quarter: 2016Q3

REPORT INFORMATION
  Report Type: Spontaneous
  Country: RO (occurrence: RO)
  Receive Date: 20160824
  Receipt Date: 20160824
  Transmission Date: 20161109
  Serious: Yes (Death, Hospitalization)
  Sender: FDA-Public Use
  Company Number: RO-SUN PHARMACEUTICAL INDUSTRIES LTD-2016RR-122388

PATIENT
  Age: 77 Year
  Sex: Male

DRUGS (7)
  1. ASPENTER [Suspect]
     Active Substance: ASPIRIN
     Indication: CEREBROVASCULAR ACCIDENT PROPHYLAXIS
     Dosage: 75 MG, DAILY
     Route: 048
     Dates: start: 2013, end: 20160801
  2. NEUPRO [Concomitant]
     Active Substance: ROTIGOTINE
     Indication: PARKINSON^S DISEASE
     Dosage: 1 PATCH/DAY
     Route: 062
     Dates: end: 20160801
  3. EXELON [Concomitant]
     Active Substance: RIVASTIGMINE TARTRATE
     Indication: DEMENTIA
     Dosage: 1 PATCH/DAY
     Route: 062
     Dates: end: 20160801
  4. DEPAKINE CHRONO [Concomitant]
     Active Substance: VALPROATE SODIUM
     Indication: EPILEPSY
     Dosage: 2 TABLETS/DAY
     Route: 048
     Dates: end: 20160801
  5. SELEGOS [Concomitant]
     Indication: PARKINSON^S DISEASE
     Dosage: 1 TABLET/DAY
     Route: 048
     Dates: end: 20160801
  6. MOTILIUM [Concomitant]
     Active Substance: DOMPERIDONE
     Indication: GASTROINTESTINAL MOTILITY DISORDER
     Dosage: 3 TABLETS/DAY
     Route: 048
     Dates: end: 20160801
  7. DUODOPA [Suspect]
     Active Substance: CARBIDOPA\LEVODOPA
     Indication: PARKINSON^S DISEASE
     Dosage: 2.9 ML/HOUR
     Route: 050
     Dates: start: 201411, end: 20160801

REACTIONS (5)
  - Malaise [Not Recovered/Not Resolved]
  - Vomiting [Unknown]
  - Gastrointestinal haemorrhage [Fatal]
  - Cardio-respiratory arrest [Not Recovered/Not Resolved]
  - Shock haemorrhagic [Not Recovered/Not Resolved]

NARRATIVE: CASE EVENT DATE: 20160729
